FAERS Safety Report 17020974 (Version 1)
Quarter: 2019Q4

REPORT INFORMATION
  Report Type: Spontaneous
  Country: CZ (occurrence: CZ)
  Receive Date: 20191112
  Receipt Date: 20191112
  Transmission Date: 20200122
  Serious: Yes (Death, Other)
  Sender: FDA-Public Use
  Company Number: CZ-VIIV HEALTHCARE LIMITED-CZ2019EME204482

PATIENT

DRUGS (1)
  1. TRIUMEQ [Suspect]
     Active Substance: ABACAVIR SULFATE\DOLUTEGRAVIR SODIUM\LAMIVUDINE
     Indication: PRODUCT USED FOR UNKNOWN INDICATION
     Dosage: UNK

REACTIONS (6)
  - Nausea [Unknown]
  - Obstruction gastric [Unknown]
  - Viral load undetectable [Unknown]
  - Neoplasm malignant [Unknown]
  - Adenocarcinoma [Fatal]
  - Vomiting [Unknown]
